FAERS Safety Report 5157640-4 (Version None)
Quarter: 2006Q4

REPORT INFORMATION
  Report Type: 
  Country: None (occurrence: None)
  Receive Date: 20061127
  Receipt Date: 20061120
  Transmission Date: 20070319
  Serious: Yes (Other)
  Sender: FDA-Public Use
  Company Number: US-JNJFOC-20061104934

PATIENT
  Sex: Male

DRUGS (10)
  1. REMICADE [Suspect]
     Indication: RHEUMATOID ARTHRITIS
     Route: 042
  2. PREDNISONE TAB [Concomitant]
  3. METHOTREXATE [Concomitant]
  4. FOSAMAX [Concomitant]
  5. PRILOSEC [Concomitant]
  6. FLOMAX [Concomitant]
  7. HYTRIN [Concomitant]
  8. ZANTAC [Concomitant]
  9. AMBIEN [Concomitant]
  10. FOLIC ACID [Concomitant]

REACTIONS (2)
  - BASAL CELL CARCINOMA [None]
  - SQUAMOUS CELL CARCINOMA [None]
